FAERS Safety Report 14655667 (Version 3)
Quarter: 2018Q2

REPORT INFORMATION
  Report Type: Spontaneous
  Country: DE (occurrence: DE)
  Receive Date: 20180319
  Receipt Date: 20180403
  Transmission Date: 20180711
  Serious: Yes (Hospitalization, Other)
  Sender: FDA-Public Use
  Company Number: DE-PFIZER INC-2018112641

PATIENT
  Age: 63 Year
  Sex: Male
  Weight: 98 kg

DRUGS (1)
  1. AMIODARONE HCL [Suspect]
     Active Substance: AMIODARONE HYDROCHLORIDE
     Indication: ATRIAL FIBRILLATION
     Dosage: 200 MG, DAILY (FOR 5 YEARS)

REACTIONS (6)
  - Cyanosis [Unknown]
  - Hypertensive crisis [Unknown]
  - Dyspnoea [Unknown]
  - Photosensitivity reaction [Unknown]
  - Cardiac failure [Unknown]
  - Skin hyperpigmentation [Unknown]
